FAERS Safety Report 10218456 (Version 2)
Quarter: 2014Q2

REPORT INFORMATION
  Report Type: Report from Study
  Country: AU (occurrence: AU)
  Receive Date: 20140605
  Receipt Date: 20140605
  Transmission Date: 20141212
  Serious: Yes (Other)
  Sender: FDA-Public Use
  Company Number: PHHY2014AU024369

PATIENT
  Age: 67 Year
  Sex: Female
  Weight: 88.6 kg

DRUGS (12)
  1. ACLASTA [Suspect]
     Indication: OSTEOPOROTIC FRACTURE
     Dosage: 5 MG, UNK
     Route: 042
     Dates: start: 20130206
  2. ALVESCO [Concomitant]
     Indication: ASTHMA
     Dosage: 1 DF, DAILY
     Route: 055
  3. CARTIA                                  /AUS/ [Concomitant]
     Indication: SYSTEMIC LUPUS ERYTHEMATOSUS
     Dosage: 1 DF, DAILY
     Route: 048
  4. CARTIA                                  /AUS/ [Concomitant]
     Indication: ANTIPHOSPHOLIPID SYNDROME
  5. CYMBALTA [Concomitant]
     Dosage: 1 DF, DAILY
     Route: 048
  6. ELIDEL [Concomitant]
     Dosage: APPLY THIN LAYER TO THE AFFECTED SKIN TWICE DAILY, RUBBING IN COMPLETELY
     Route: 061
  7. PANADOL OSTEO [Concomitant]
     Dosage: 2 DF, BID, M.D.U
     Route: 048
  8. PARIET [Concomitant]
     Dosage: 1 DF, DAILY
     Route: 048
  9. PLAQUENIL [Concomitant]
     Indication: SYSTEMIC LUPUS ERYTHEMATOSUS
     Dosage: 1 DF, BID, M.D.U
     Route: 048
  10. PLAQUENIL [Concomitant]
     Indication: ANTIPHOSPHOLIPID SYNDROME
  11. SEREVENT [Concomitant]
     Indication: ASTHMA
     Dosage: 2 DF, DAILY, M.D.U.
     Route: 055
  12. VITAMIN D3 [Concomitant]
     Dosage: 1 DF, 1000 UNITS, DAILY
     Route: 048

REACTIONS (7)
  - Atrial flutter [Not Recovered/Not Resolved]
  - Palpitations [Not Recovered/Not Resolved]
  - Supraventricular tachycardia [Unknown]
  - Supraventricular extrasystoles [Unknown]
  - Cough [Not Recovered/Not Resolved]
  - Dyspnoea [Not Recovered/Not Resolved]
  - Glomerular filtration rate decreased [Unknown]
